FAERS Safety Report 7794550-8 (Version None)
Quarter: 2011Q4

REPORT INFORMATION
  Report Type: 
  Country: None (occurrence: None)
  Receive Date: 20111004
  Receipt Date: 20110923
  Transmission Date: 20120403
  Serious: Yes (Other)
  Sender: FDA-Public Use
  Company Number: GB-SANOFI-AVENTIS-2011SA031102

PATIENT
  Age: 86 Year
  Sex: Female
  Weight: 66.2 kg

DRUGS (23)
  1. PARAFFIN, LIQUID [Concomitant]
     Route: 065
  2. LIQUIFILM TEARS [Concomitant]
     Route: 065
  3. PIROXICAM [Concomitant]
     Route: 065
  4. CARMELLOSE [Concomitant]
     Dosage: 1-2 DROPS
     Route: 065
  5. LOPERAMIDE HCL [Concomitant]
     Route: 065
  6. CODEINE [Concomitant]
     Route: 065
  7. VOLTAREN [Concomitant]
     Route: 065
  8. BISOPROLOL [Concomitant]
     Route: 065
  9. ALGESAL [Concomitant]
     Route: 065
  10. ATORVASTATIN [Concomitant]
     Route: 065
  11. ESTRADIOL [Concomitant]
     Route: 065
  12. ACETAMINOPHEN [Concomitant]
     Dosage: 1-2 QD
     Route: 065
  13. ADCAL-D3 [Concomitant]
     Indication: OSTEOPOROSIS
     Route: 065
  14. VISCOTEARS [Concomitant]
     Route: 065
  15. ACETAMINOPHEN WITH PROPOXYPHENE HCL TAB [Concomitant]
     Dosage: 1-2 DF
     Route: 065
  16. DIPROBASE CREAM [Concomitant]
     Route: 065
  17. ALL OTHER THERAPEUTIC PRODUCTS [Concomitant]
     Route: 065
  18. HYDROCORTISONE [Concomitant]
     Route: 065
  19. MULTAQ [Suspect]
     Route: 048
     Dates: start: 20101021, end: 20110906
  20. BECONASE [Concomitant]
     Route: 065
  21. HYPROMELLOSE [Concomitant]
     Dosage: 1-2 DROPS  TID
     Route: 065
  22. OVESTIN [Concomitant]
     Route: 065
  23. WARFARIN SODIUM [Concomitant]
     Route: 065

REACTIONS (2)
  - ATRIAL FIBRILLATION [None]
  - DRUG INEFFECTIVE [None]
